FAERS Safety Report 25920173 (Version 4)
Quarter: 2025Q4

REPORT INFORMATION
  Report Type: Report from Study
  Country: US (occurrence: US)
  Receive Date: 20251014
  Receipt Date: 20251219
  Transmission Date: 20260118
  Serious: Yes (Other)
  Sender: ABBVIE
  Company Number: US-ABBVIE-6501855

PATIENT
  Age: 66 Year
  Sex: Female
  Weight: 90.264 kg

DRUGS (6)
  1. RINVOQ [Suspect]
     Active Substance: UPADACITINIB
     Indication: Crohn^s disease
     Dosage: FOR 12 WEEKS
     Route: 048
     Dates: start: 202405
  2. RINVOQ [Suspect]
     Active Substance: UPADACITINIB
     Indication: Crohn^s disease
     Route: 048
  3. PANTOPRAZOLE [Concomitant]
     Active Substance: PANTOPRAZOLE
     Indication: Gastrooesophageal reflux disease
     Dosage: FREQUENCY- UNKNOWN
  4. ALBUTEROL [Concomitant]
     Active Substance: ALBUTEROL
     Indication: Asthma
     Dosage: UNKNOWN
  5. ATORVASTATIN [Concomitant]
     Active Substance: ATORVASTATIN
     Indication: Blood cholesterol
     Dosage: UNKNOWN
  6. METOPROLOL [Concomitant]
     Active Substance: METOPROLOL
     Indication: Blood pressure measurement
     Dosage: UNKNOWN

REACTIONS (6)
  - Intervertebral disc disorder [Recovering/Resolving]
  - Abdominal pain [Unknown]
  - Gastrointestinal disorder [Not Recovered/Not Resolved]
  - Hypophagia [Unknown]
  - Stress [Unknown]
  - Dyspepsia [Unknown]

NARRATIVE: CASE EVENT DATE: 20251001
